FAERS Safety Report 8452975-1 (Version None)
Quarter: 2012Q2

REPORT INFORMATION
  Report Type: 
  Country: None (occurrence: None)
  Receive Date: 20120620
  Receipt Date: 20120502
  Transmission Date: 20120825
  Serious: No
  Sender: FDA-Public Use
  Company Number: US-VERTEX PHARMACEUTICALS INC.-AE-2012-006396

PATIENT
  Sex: Male
  Weight: 101.24 kg

DRUGS (10)
  1. FENOGLIDE [Concomitant]
  2. ACTOPLUS XR [Concomitant]
  3. SORIATANE [Concomitant]
  4. CRESTOR [Concomitant]
  5. PEGASYS [Concomitant]
     Indication: HEPATITIS C
     Route: 058
     Dates: start: 20120409, end: 20120430
  6. RIBAVIRIN [Concomitant]
     Indication: HEPATITIS C
     Route: 048
     Dates: start: 20120409, end: 20120430
  7. INCIVEK [Suspect]
     Indication: HEPATITIS C
     Route: 048
     Dates: start: 20120409, end: 20120430
  8. METFORMIN HCL [Concomitant]
  9. DIOVAN HCT [Concomitant]
  10. RANITIDINE [Concomitant]

REACTIONS (3)
  - BLOOD UREA INCREASED [None]
  - BLOOD URIC ACID INCREASED [None]
  - BLOOD CREATININE INCREASED [None]
